FAERS Safety Report 4674016-4 (Version None)
Quarter: 2005Q2

REPORT INFORMATION
  Report Type: 
  Country: None (occurrence: None)
  Receive Date: 20050525
  Receipt Date: 20050511
  Transmission Date: 20051028
  Serious: Yes (Other)
  Sender: FDA-Public Use
  Company Number: 2005062178

PATIENT
  Age: 60 Year
  Sex: Female

DRUGS (2)
  1. LIPITOR [Suspect]
     Indication: BLOOD TRIGLYCERIDES INCREASED
     Dosage: 40 MG (40 MG, 1  IN 1 D), ORAL
     Route: 048
     Dates: start: 20050101, end: 20050201
  2. BEXTRA [Suspect]
     Indication: PAIN
     Dosage: 40 MG (40 MG, 1 IN 1 D), INTRAMUSCULAR
     Route: 030
     Dates: start: 20050101, end: 20050101

REACTIONS (10)
  - FURUNCLE [None]
  - IMMUNODEFICIENCY [None]
  - INFECTION [None]
  - INFLAMMATION [None]
  - MYALGIA [None]
  - PAIN [None]
  - PAIN IN EXTREMITY [None]
  - PRURITUS [None]
  - SKIN DISCOLOURATION [None]
  - WOUND [None]
